FAERS Safety Report 6111335-9 (Version None)
Quarter: 2009Q1

REPORT INFORMATION
  Report Type: 
  Country: None (occurrence: None)
  Receive Date: 20090311
  Receipt Date: 20090303
  Transmission Date: 20090719
  Serious: Yes (Other)
  Sender: FDA-Public Use
  Company Number: A0718704A

PATIENT
  Age: 54 Year
  Sex: Female
  Weight: 104.5 kg

DRUGS (8)
  1. AVANDIA [Suspect]
     Route: 048
     Dates: start: 20000101, end: 20070301
  2. SYNTHROID [Concomitant]
  3. TRAZODONE HCL [Concomitant]
  4. PLAVIX [Concomitant]
  5. ALTACE [Concomitant]
  6. CHROMAGEN FORTE [Concomitant]
  7. COUMADIN [Concomitant]
  8. ARANESP [Concomitant]

REACTIONS (3)
  - CARDIAC FAILURE CONGESTIVE [None]
  - CORONARY ARTERY DISEASE [None]
  - MYOCARDIAL INFARCTION [None]
